FAERS Safety Report 5402819-7 (Version None)
Quarter: 2007Q3

REPORT INFORMATION
  Report Type: 
  Country: None (occurrence: None)
  Receive Date: 20070801
  Receipt Date: 20070720
  Transmission Date: 20080115
  Serious: Yes (Death)
  Sender: FDA-Public Use
  Company Number: JP-ROCHE-504854

PATIENT
  Age: 40 Year
  Sex: Female

DRUGS (2)
  1. TAMIFLU [Suspect]
     Route: 048
     Dates: start: 20060216, end: 20060217
  2. LOXONIN [Concomitant]
     Route: 048

REACTIONS (1)
  - CONVULSION [None]
